FAERS Safety Report 7321385 (Version 5)
Quarter: 2013Q4

REPORT INFORMATION
  Report Type: Spontaneous
  Country: US (occurrence: US)
  Receive Date: 20100316
  Receipt Date: 20131007
  Transmission Date: 20140711
  Serious: Yes (Other)
  Sender: FDA-Public Use
  Company Number: US-ROCHE-649305

PATIENT
  Age: 22 Year
  Sex: Female
  Weight: 61.2 kg

DRUGS (3)
  1. ACCUTANE [Suspect]
     Indication: ACNE
     Route: 065
     Dates: start: 198807, end: 198809
  2. ACCUTANE [Suspect]
     Route: 065
     Dates: start: 19950815, end: 199602
  3. TRIPHASIL [Concomitant]
     Indication: CONTRACEPTION

REACTIONS (13)
  - Crohn^s disease [Unknown]
  - Inflammatory bowel disease [Unknown]
  - Depression [Unknown]
  - Suicidal ideation [Unknown]
  - Arthralgia [Unknown]
  - Respiratory tract infection [Unknown]
  - Myalgia [Unknown]
  - Skin irritation [Recovering/Resolving]
  - Dermatitis contact [Unknown]
  - Skin papilloma [Unknown]
  - Urticaria [Unknown]
  - Stress [Unknown]
  - Lymphopenia [Recovered/Resolved]
